FAERS Safety Report 12245353 (Version 1)
Quarter: 2016Q2

REPORT INFORMATION
  Report Type: Spontaneous
  Country: GB (occurrence: GB)
  Receive Date: 20160407
  Receipt Date: 20160407
  Transmission Date: 20160815
  Serious: Yes (Other)
  Sender: FDA-Public Use
  Company Number: GB-SUN PHARMACEUTICAL INDUSTRIES LTD-2016RR-114551

PATIENT
  Age: 67 Year
  Sex: Female

DRUGS (2)
  1. MIRTAZAPINE. [Suspect]
     Active Substance: MIRTAZAPINE
     Indication: PRODUCT USED FOR UNKNOWN INDICATION
     Dosage: STATED DOSE ON MEDICATION BOX WAS 45MG.
     Route: 065
  2. OLANZAPINE. [Suspect]
     Active Substance: OLANZAPINE
     Indication: PRODUCT USED FOR UNKNOWN INDICATION
     Dosage: TO BE TAKEN AT NIGHT.
     Route: 065

REACTIONS (5)
  - Inappropriate schedule of drug administration [Unknown]
  - Decreased appetite [Unknown]
  - Accidental overdose [Unknown]
  - Incontinence [Unknown]
  - Somnolence [Unknown]

NARRATIVE: CASE EVENT DATE: 20160113
